FAERS Safety Report 9958680 (Version 1)
Quarter: 2014Q1

REPORT INFORMATION
  Report Type: Spontaneous
  Country: US (occurrence: None)
  Receive Date: 20140227
  Receipt Date: 20140227
  Transmission Date: 20141002
  Serious: Yes (Other)
  Sender: FDA-Public Use
  Company Number: ADR-2014-00266

PATIENT
  Sex: Male

DRUGS (1)
  1. BACLOFEN INTRATHECAL [Suspect]
     Indication: MUSCLE SPASTICITY

REACTIONS (6)
  - Headache [None]
  - Neck pain [None]
  - Nervous system disorder [None]
  - Drug withdrawal syndrome [None]
  - Hypoaesthesia [None]
  - Urinary incontinence [None]
